FAERS Safety Report 9163058 (Version 1)
Quarter: 2013Q1

REPORT INFORMATION
  Report Type: Spontaneous
  Country: IT (occurrence: None)
  Receive Date: 20130227
  Receipt Date: 20130227
  Transmission Date: 20140127
  Serious: Yes (Other)
  Sender: FDA-Public Use
  Company Number: AUR-APL-2013-01729

PATIENT
  Age: 85 Year
  Sex: Female
  Weight: 60 kg

DRUGS (5)
  1. LEVETIRACETAM [Suspect]
     Dosage: 1DOSE  UNIT/DAY, ORAL
     Route: 048
     Dates: start: 20121001, end: 20121030
  2. CO-EFFERALGAN (PANADEINE CO) [Concomitant]
  3. RIOPAN (MAGALDRATE) [Concomitant]
  4. LUMIGAN (BIMATOPROST) [Concomitant]
  5. POSFOMYCIN (FOSFOMYCIN) [Concomitant]

REACTIONS (3)
  - Agitation [None]
  - Insomnia [None]
  - Mood altered [None]
